FAERS Safety Report 8760274 (Version 2)
Quarter: 2012Q4

REPORT INFORMATION
  Report Type: 
  Country: US (occurrence: US)
  Receive Date: 20120830
  Receipt Date: 20120830
  Transmission Date: 20130627
  Serious: No
  Sender: FDA-Public Use
  Company Number: US-009507513-1204USA03222

PATIENT

DRUGS (3)
  1. JANUVIA [Suspect]
     Indication: DIABETES MELLITUS
     Dosage: 100 mg, bid
     Route: 048
     Dates: start: 20120420
  2. JANUVIA [Suspect]
     Indication: BLOOD GLUCOSE INCREASED
     Dosage: 1 DF, Once
     Route: 048
     Dates: start: 20120822
  3. METHYLPREDNISOLONE [Suspect]
     Indication: HYPERSENSITIVITY
     Dosage: 2 DF, 3 times
     Dates: start: 20120822

REACTIONS (4)
  - Nervousness [Unknown]
  - Overdose [Unknown]
  - Expired drug administered [Unknown]
  - Blood glucose increased [Unknown]
